FAERS Safety Report 23703018 (Version 1)
Quarter: 2024Q2

REPORT INFORMATION
  Report Type: Spontaneous
  Country: EG (occurrence: EG)
  Receive Date: 20240403
  Receipt Date: 20240403
  Transmission Date: 20240716
  Serious: Yes (Hospitalization)
  Sender: FDA-Public Use
  Company Number: EG-002147023-NVSC2024EG069562

PATIENT
  Age: 24 Year
  Sex: Female

DRUGS (1)
  1. TOBRADEX [Suspect]
     Active Substance: DEXAMETHASONE\TOBRAMYCIN
     Indication: Conjunctivitis
     Dosage: UNK
     Route: 065
     Dates: start: 20220118

REACTIONS (9)
  - Intraocular pressure increased [Unknown]
  - Angle closure glaucoma [Unknown]
  - Eye disorder [Unknown]
  - Headache [Unknown]
  - Eye ulcer [Unknown]
  - Visual impairment [Unknown]
  - Eye discharge [Unknown]
  - Eye pain [Unknown]
  - Vision blurred [Unknown]

NARRATIVE: CASE EVENT DATE: 20220124
